FAERS Safety Report 14753407 (Version 3)
Quarter: 2018Q3

REPORT INFORMATION
  Report Type: Spontaneous
  Country: US (occurrence: US)
  Receive Date: 20180412
  Receipt Date: 20180705
  Transmission Date: 20181010
  Serious: No
  Sender: FDA-Public Use
  Company Number: PHEH2018US013261

PATIENT
  Sex: Female

DRUGS (1)
  1. ESTRADIOL. [Suspect]
     Active Substance: ESTRADIOL
     Indication: PRODUCT USED FOR UNKNOWN INDICATION
     Dosage: 0.037 MG, QW
     Route: 062
     Dates: start: 20171121

REACTIONS (4)
  - Product adhesion issue [Unknown]
  - Migraine [Unknown]
  - Menopausal symptoms [Unknown]
  - Hot flush [Unknown]
